FAERS Safety Report 21461502 (Version 1)
Quarter: 2022Q4

REPORT INFORMATION
  Report Type: Spontaneous
  Country: AR (occurrence: AR)
  Receive Date: 20221015
  Receipt Date: 20221015
  Transmission Date: 20230113
  Serious: Yes (Hospitalization, Other)
  Sender: FDA-Public Use
  Company Number: AR-ABBVIE-4157706

PATIENT

DRUGS (2)
  1. SKYRIZI [Suspect]
     Active Substance: RISANKIZUMAB-RZAA
     Indication: Psoriasis
     Route: 058
  2. SKYRIZI [Suspect]
     Active Substance: RISANKIZUMAB-RZAA
     Route: 058

REACTIONS (9)
  - Cholangitis [Recovering/Resolving]
  - Stress [Unknown]
  - Blood alkaline phosphatase increased [Unknown]
  - Psoriasis [Unknown]
  - Blood bilirubin increased [Unknown]
  - Pyrexia [Unknown]
  - General physical health deterioration [Unknown]
  - Transaminases increased [Unknown]
  - Cardiac disorder [Recovering/Resolving]
